FAERS Safety Report 18139669 (Version 2)
Quarter: 2022Q2

REPORT INFORMATION
  Report Type: Spontaneous
  Country: US (occurrence: US)
  Receive Date: 20200812
  Receipt Date: 20220520
  Transmission Date: 20220721
  Serious: No
  Sender: FDA-Public Use
  Company Number: US-PFIZER INC-2020309506

PATIENT
  Sex: Female

DRUGS (1)
  1. LIOTHYRONINE SODIUM [Suspect]
     Active Substance: LIOTHYRONINE SODIUM
     Dosage: UNK

REACTIONS (2)
  - Drug ineffective [Unknown]
  - Hypersomnia [Recovered/Resolved]
